FAERS Safety Report 5443013-3 (Version None)
Quarter: 2007Q3

REPORT INFORMATION
  Report Type: 
  Country: None (occurrence: None)
  Receive Date: 20070905
  Receipt Date: 20070827
  Transmission Date: 20080115
  Serious: Yes (Other)
  Sender: FDA-Public Use
  Company Number: PHBS2007JP14349

PATIENT
  Age: 61 Year
  Sex: Female

DRUGS (3)
  1. ZOLEDRONIC ACID [Suspect]
     Route: 042
  2. BISPHONAL [Concomitant]
     Route: 042
  3. PAMIDRONATE DISODIUM [Suspect]
     Route: 042

REACTIONS (2)
  - OSTEOMYELITIS [None]
  - OSTEONECROSIS [None]
